FAERS Safety Report 10993168 (Version 1)
Quarter: 2015Q2

REPORT INFORMATION
  Report Type: Not Available
  Country: US (occurrence: US)
  Receive Date: 20150407
  Receipt Date: 20150407
  Transmission Date: 20150821
  Serious: No
  Sender: FDA-Public Use
  Company Number: US-LUPIN PHARMACEUTICALS INC.-E2B_00003149

PATIENT
  Sex: Female
  Weight: 83.99 kg

DRUGS (8)
  1. EXELON PATCHES [Concomitant]
     Indication: DEMENTIA
     Route: 061
  2. SERTRALINE [Concomitant]
     Active Substance: SERTRALINE HYDROCHLORIDE
     Indication: PRODUCT USED FOR UNKNOWN INDICATION
  3. QUETIAPINE FUMARATE TABLETS 25 MG [Suspect]
     Active Substance: QUETIAPINE FUMARATE
     Dosage: 25MG ONCE OR TWICE DAILY
  4. NAMENDA [Concomitant]
     Active Substance: MEMANTINE HYDROCHLORIDE
     Indication: DEMENTIA
  5. QUETIAPINE FUMARATE TABLETS 25 MG [Suspect]
     Active Substance: QUETIAPINE FUMARATE
     Indication: PSYCHOTIC DISORDER
  6. QUETIAPINE FUMARATE TABLETS 25 MG [Suspect]
     Active Substance: QUETIAPINE FUMARATE
  7. NAMENDA [Concomitant]
     Active Substance: MEMANTINE HYDROCHLORIDE
  8. SERTRALINE [Concomitant]
     Active Substance: SERTRALINE HYDROCHLORIDE

REACTIONS (5)
  - Wrong technique in drug usage process [Unknown]
  - Middle insomnia [Not Recovered/Not Resolved]
  - Crying [Not Recovered/Not Resolved]
  - Emotional disorder [Not Recovered/Not Resolved]
  - Feeling abnormal [Not Recovered/Not Resolved]
